FAERS Safety Report 7888300-4 (Version None)
Quarter: 2011Q4

REPORT INFORMATION
  Report Type: 
  Country: None (occurrence: None)
  Receive Date: 20111102
  Receipt Date: 20111102
  Transmission Date: 20120403
  Serious: Yes (Other)
  Sender: FDA-Public Use
  Company Number: None

PATIENT
  Sex: Female
  Weight: 17.6903 kg

DRUGS (1)
  1. NIX [Suspect]
     Indication: LICE INFESTATION
     Dosage: ONE BOTTLE ON 10/26/2011
     Dates: start: 20111026, end: 20111026

REACTIONS (2)
  - CONDITION AGGRAVATED [None]
  - LICE INFESTATION [None]
